FAERS Safety Report 16523766 (Version 1)
Quarter: 2019Q3

REPORT INFORMATION
  Report Type: Report from Study
  Country: US (occurrence: US)
  Receive Date: 20190702
  Receipt Date: 20190702
  Transmission Date: 20191004
  Serious: Yes (Hospitalization)
  Sender: FDA-Public Use
  Company Number: US-CELGENEUS-USA-20190611051

PATIENT
  Age: 72 Year
  Sex: Male
  Weight: 95.8 kg

DRUGS (3)
  1. MIDOSTAURIN [Suspect]
     Active Substance: MIDOSTAURIN
     Indication: ACUTE MYELOID LEUKAEMIA
     Dosage: 75 MILLIGRAM
     Route: 048
     Dates: start: 20150514, end: 20150527
  2. AZACITIDINE (SANDOZ) [Suspect]
     Active Substance: AZACITIDINE
     Indication: ACUTE MYELOID LEUKAEMIA
     Dosage: 75 MILLIGRAM/SQ. METER
     Route: 048
     Dates: start: 20150409, end: 20150415
  3. AZACITIDINE (SANDOZ) [Suspect]
     Active Substance: AZACITIDINE
     Dosage: 75 MILLIGRAM
     Route: 048
     Dates: start: 20150507, end: 20150513

REACTIONS (1)
  - Septic shock [Recovered/Resolved]

NARRATIVE: CASE EVENT DATE: 20150514
